FAERS Safety Report 16098919 (Version 1)
Quarter: 2019Q1

REPORT INFORMATION
  Report Type: Spontaneous
  Country: US (occurrence: US)
  Receive Date: 20190321
  Receipt Date: 20190321
  Transmission Date: 20190418
  Serious: No
  Sender: FDA-Public Use
  Company Number: US-PFIZER INC-2018085480

PATIENT
  Age: 60 Year
  Sex: Male
  Weight: 104.3 kg

DRUGS (2)
  1. GENOTROPIN MQ [Suspect]
     Active Substance: SOMATROPIN
     Indication: ADRENAL INSUFFICIENCY
     Dosage: 0.2 MG, DAILY
     Dates: start: 20170819
  2. GENOTROPIN MQ [Suspect]
     Active Substance: SOMATROPIN
     Dosage: 0.2 MG, UNK (0.2MG MINIQUICK, 3 TIMES PER WEEK ALSO REPORTED AS 3 DAYS PER WEEK)
     Dates: start: 20170819

REACTIONS (2)
  - Product use in unapproved indication [Unknown]
  - Insulin-like growth factor increased [Unknown]
